FAERS Safety Report 8370932-0 (Version None)
Quarter: 2012Q1

REPORT INFORMATION
  Report Type: 
  Country: None (occurrence: None)
  Receive Date: 20120323
  Receipt Date: 20110127
  Transmission Date: 20120608
  Serious: Yes (Hospitalization, Other)
  Sender: FDA-Public Use
  Company Number: 163-21880-11013019

PATIENT
  Age: 71 Year
  Sex: Male

DRUGS (19)
  1. VYTORIN (INEGY) (UNKNOWN) [Concomitant]
  2. GABAPENTIN [Concomitant]
  3. ONDANSETRON (ONDANSETRON) (UNKNOWN) [Concomitant]
  4. EPOETIN (EPOETIN ALFA) (UNKNOWN) [Concomitant]
  5. LORAZEPAM [Concomitant]
  6. REVLIMID [Suspect]
     Indication: MULTIPLE MYELOMA
     Dosage: 25 MG, DAILY X 21 DAYS THEN 7 DAYS OFF, PO
     Route: 048
     Dates: start: 20080301
  7. AMLODIPINE [Concomitant]
  8. PROAIR (FLUTICASONE PROPIONATE) (UNKNOWN) [Concomitant]
  9. LEUPROLIDE (LEUPRORELIN) (UNKNOWN) [Concomitant]
  10. COREG (CARVEDILOL) (UNKNOWN) [Concomitant]
  11. NITROGLYCERINE (GLYCERYL TRINITRATE) (UNKNOWN) [Concomitant]
  12. DOXIL [Concomitant]
  13. OMEPRAZOLE [Concomitant]
  14. ZOLPIDEM [Concomitant]
  15. VITAMIN D (ERGOCALCIFEROL) (UNKNOWN) [Concomitant]
  16. NIASPAN (NICOTINIC ACID) (UNKNOWN) [Concomitant]
  17. ASPIRIN [Concomitant]
  18. HYDROCODONE/APAP (PROCET /USA/) (UNKNOWN) [Concomitant]
  19. QVAR (BECLOMETASONE DIPROPIONATE) (UNKNOWN) [Concomitant]

REACTIONS (4)
  - RENAL IMPAIRMENT [None]
  - FEBRILE NEUTROPENIA [None]
  - HAEMOGLOBIN DECREASED [None]
  - PLATELET COUNT DECREASED [None]
